FAERS Safety Report 22600489 (Version 4)
Quarter: 2023Q4

REPORT INFORMATION
  Report Type: Spontaneous
  Country: US (occurrence: US)
  Receive Date: 20230614
  Receipt Date: 20231223
  Transmission Date: 20240110
  Serious: No
  Sender: FDA-Public Use
  Company Number: US-BRISTOL-MYERS SQUIBB COMPANY-2023-083505

PATIENT
  Age: 74 Year
  Sex: Female

DRUGS (1)
  1. POMALYST [Suspect]
     Active Substance: POMALIDOMIDE
     Indication: Plasma cell myeloma
     Dosage: FREQUENCY: OTHER
     Route: 048

REACTIONS (6)
  - Stomatitis [Unknown]
  - Headache [Unknown]
  - Dizziness [Unknown]
  - Hypersensitivity [Unknown]
  - Eyelid disorder [Unknown]
  - Product dose omission issue [Unknown]
